FAERS Safety Report 13526890 (Version 1)
Quarter: 2017Q2

REPORT INFORMATION
  Report Type: Spontaneous
  Country: US (occurrence: US)
  Receive Date: 20170508
  Receipt Date: 20170508
  Transmission Date: 20170830
  Serious: Yes (Hospitalization)
  Sender: FDA-Public Use
  Company Number: None

PATIENT
  Age: 70 Year
  Sex: Male
  Weight: 74.8 kg

DRUGS (1)
  1. AXITINIB [Suspect]
     Active Substance: AXITINIB
     Indication: HYPOTHYROIDISM
     Route: 048
     Dates: start: 20160920, end: 20170321

REACTIONS (8)
  - Oedema peripheral [None]
  - Bone pain [None]
  - Radiation pneumonitis [None]
  - Hypothyroidism [None]
  - Tremor [None]
  - Fatigue [None]
  - Myalgia [None]
  - Chronic obstructive pulmonary disease [None]

NARRATIVE: CASE EVENT DATE: 20170321
